FAERS Safety Report 9818314 (Version 2)
Quarter: 2014Q1

REPORT INFORMATION
  Report Type: Spontaneous
  Country: US (occurrence: US)
  Receive Date: 20140115
  Receipt Date: 20140115
  Transmission Date: 20141002
  Serious: No
  Sender: FDA-Public Use
  Company Number: US-PFIZER INC-2013368658

PATIENT
  Age: 4 Year
  Sex: Female

DRUGS (2)
  1. QUILLIVANT XR [Suspect]
     Indication: ATTENTION DEFICIT/HYPERACTIVITY DISORDER
     Dosage: 2ML IN THE MORNING  ON WEEKDAYS
     Route: 048
     Dates: start: 20131226
  2. QUILLIVANT XR [Suspect]
     Dosage: 1.5 ML IN THE MORNING
     Route: 048

REACTIONS (2)
  - Sleep disorder [Unknown]
  - Off label use [Not Recovered/Not Resolved]
